FAERS Safety Report 11495246 (Version 1)
Quarter: 2015Q3

REPORT INFORMATION
  Report Type: Spontaneous
  Country: CO (occurrence: CO)
  Receive Date: 20150911
  Receipt Date: 20150911
  Transmission Date: 20151125
  Serious: Yes (Hospitalization)
  Sender: FDA-Public Use
  Company Number: CO-BIOGENIDEC-2015BI120891

PATIENT
  Age: 65 Year
  Sex: Male

DRUGS (1)
  1. FAMPYRA [Suspect]
     Active Substance: DALFAMPRIDINE
     Indication: PRODUCT USED FOR UNKNOWN INDICATION
     Dates: start: 201508

REACTIONS (4)
  - Pain in extremity [Unknown]
  - Nausea [Unknown]
  - Abdominal pain upper [Unknown]
  - Headache [Unknown]

NARRATIVE: CASE EVENT DATE: 201508
